FAERS Safety Report 14317477 (Version 1)
Quarter: 2017Q4

REPORT INFORMATION
  Report Type: Spontaneous
  Country: GR (occurrence: GR)
  Receive Date: 20171222
  Receipt Date: 20171222
  Transmission Date: 20180321
  Serious: Yes (Hospitalization, Other)
  Sender: FDA-Public Use
  Company Number: GR-009507513-1712GRC008267

PATIENT
  Age: 74 Year
  Sex: Male

DRUGS (2)
  1. RANOLAZINE HYDROCHLORIDE [Interacting]
     Active Substance: RANOLAZINE HYDROCHLORIDE
     Indication: ANGINA PECTORIS
     Dosage: UNK
  2. SIMVASTATIN. [Suspect]
     Active Substance: SIMVASTATIN
     Indication: DYSLIPIDAEMIA
     Dosage: UNK

REACTIONS (3)
  - Blood creatine phosphokinase increased [Recovering/Resolving]
  - Drug interaction [Unknown]
  - Rhabdomyolysis [Unknown]
